FAERS Safety Report 16772364 (Version 2)
Quarter: 2019Q3

REPORT INFORMATION
  Report Type: Report from Study
  Country: US (occurrence: US)
  Receive Date: 20190904
  Receipt Date: 20190925
  Transmission Date: 20191005
  Serious: Yes (Other)
  Sender: FDA-Public Use
  Company Number: US-ROCHE-2391337

PATIENT
  Sex: Male
  Weight: 78.54 kg

DRUGS (1)
  1. ACTEMRA [Suspect]
     Active Substance: TOCILIZUMAB
     Indication: RHEUMATOID ARTHRITIS
     Dosage: INJECT 162MG (0.9ML) SUBCUTANEOUSLY EVERY OTHER WEEK
     Route: 058
     Dates: start: 201603

REACTIONS (1)
  - Spinal fracture [Unknown]
